FAERS Safety Report 10168389 (Version 1)
Quarter: 2014Q2

REPORT INFORMATION
  Report Type: Spontaneous
  Country: US (occurrence: US)
  Receive Date: 20140513
  Receipt Date: 20140513
  Transmission Date: 20141212
  Serious: No
  Sender: FDA-Public Use
  Company Number: US-009507513-1405USA001650

PATIENT
  Age: 20 Year
  Sex: Female
  Weight: 91.61 kg

DRUGS (1)
  1. NEXPLANON [Suspect]
     Indication: CONTRACEPTION
     Dosage: 1 ROD INSERTED
     Route: 059
     Dates: start: 20140306

REACTIONS (4)
  - Paraesthesia [Unknown]
  - Paraesthesia [Unknown]
  - Weight increased [Unknown]
  - Acarodermatitis [Unknown]
